FAERS Safety Report 6390523-0 (Version None)
Quarter: 2009Q4

REPORT INFORMATION
  Report Type: 
  Country: None (occurrence: None)
  Receive Date: 20091006
  Receipt Date: 20090922
  Transmission Date: 20100525
  Serious: Yes (Other)
  Sender: FDA-Public Use
  Company Number: GB-PFIZER INC-2009272135

PATIENT
  Age: 45 Year

DRUGS (5)
  1. CHAMPIX [Suspect]
     Indication: SMOKING CESSATION THERAPY
     Dosage: 1 MG, UNK
     Route: 048
     Dates: start: 20090112, end: 20090302
  2. CO-CODAMOL [Concomitant]
  3. GOSERELIN [Concomitant]
     Indication: BREAST CANCER
     Dosage: 3.6 MG, UNK
  4. PARACETAMOL [Concomitant]
  5. VENLAFAXINE [Concomitant]
     Indication: DEPRESSION
     Dosage: 150 MG, UNK
     Route: 048
     Dates: start: 20080724

REACTIONS (1)
  - INTENTIONAL OVERDOSE [None]
